FAERS Safety Report 9308600 (Version 2)
Quarter: 2013Q2

REPORT INFORMATION
  Report Type: Report from Study
  Country: RU (occurrence: RU)
  Receive Date: 20130524
  Receipt Date: 20130607
  Transmission Date: 20140414
  Serious: Yes (Hospitalization, Congenital Anomaly)
  Sender: FDA-Public Use
  Company Number: RU-ABBOTT-13P-251-1092303-00

PATIENT
  Sex: Female
  Weight: 4.03 kg

DRUGS (4)
  1. UTROGESTAN [Suspect]
     Indication: PROPHYLAXIS
     Dosage: BEDTIME
     Route: 064
     Dates: start: 20130131, end: 20130419
  2. UTROGESTAN [Suspect]
     Indication: PREMATURE DELIVERY
  3. MAGNE B6 [Concomitant]
     Indication: PRODUCT USED FOR UNKNOWN INDICATION
     Route: 064
     Dates: start: 20130131, end: 20130228
  4. FENULES [Concomitant]
     Indication: PRODUCT USED FOR UNKNOWN INDICATION
     Route: 064
     Dates: start: 20130328, end: 20130416

REACTIONS (2)
  - Haemangioma [Not Recovered/Not Resolved]
  - Foetal exposure during pregnancy [Unknown]
